FAERS Safety Report 19745139 (Version 1)
Quarter: 2021Q3

REPORT INFORMATION
  Report Type: Spontaneous
  Country: US (occurrence: US)
  Receive Date: 20210824
  Receipt Date: 20210824
  Transmission Date: 20211014
  Serious: No
  Sender: FDA-Public Use
  Company Number: None

PATIENT
  Age: 53 Year
  Sex: Male
  Weight: 90.9 kg

DRUGS (3)
  1. SPRYCEL [Suspect]
     Active Substance: DASATINIB
     Indication: CHRONIC MYELOID LEUKAEMIA
     Route: 048
     Dates: start: 20170729
  2. ALPRAZOLAM 0.5MG [Concomitant]
     Active Substance: ALPRAZOLAM
  3. VITAMIN D 1000IU [Concomitant]

REACTIONS (4)
  - Malaise [None]
  - Clostridium difficile infection [None]
  - Therapy interrupted [None]
  - Asthenia [None]

NARRATIVE: CASE EVENT DATE: 20210823
